FAERS Safety Report 24893966 (Version 2)
Quarter: 2025Q1

REPORT INFORMATION
  Report Type: Spontaneous
  Country: FR (occurrence: FR)
  Receive Date: 20250128
  Receipt Date: 20250311
  Transmission Date: 20250409
  Serious: Yes (Death, Hospitalization)
  Sender: TEVA
  Company Number: None

PATIENT
  Age: 70 Year
  Sex: Male

DRUGS (5)
  1. FLUOROURACIL [Suspect]
     Active Substance: FLUOROURACIL
     Indication: Colon cancer
     Route: 042
     Dates: start: 20250106, end: 20250107
  2. FLECAINIDE [Concomitant]
     Active Substance: FLECAINIDE
     Indication: Product used for unknown indication
     Route: 065
  3. BISOPROLOL FUMARATE [Concomitant]
     Active Substance: BISOPROLOL FUMARATE
     Indication: Product used for unknown indication
     Route: 065
  4. OXALIPLATIN [Suspect]
     Active Substance: OXALIPLATIN
     Indication: Colon cancer
     Route: 042
     Dates: start: 20250106, end: 20250106
  5. ELIQUIS [Concomitant]
     Active Substance: APIXABAN
     Indication: Product used for unknown indication
     Route: 065

REACTIONS (1)
  - Gastric ischaemia [Fatal]

NARRATIVE: CASE EVENT DATE: 20250108
